FAERS Safety Report 5473514-3 (Version None)
Quarter: 2007Q3

REPORT INFORMATION
  Report Type: 
  Country: None (occurrence: None)
  Receive Date: 20070830
  Receipt Date: 20070131
  Transmission Date: 20080115
  Serious: Yes (Other)
  Sender: FDA-Public Use
  Company Number: KADN20070029

PATIENT
  Age: 29 Year
  Sex: Male

DRUGS (1)
  1. KADIAN [Suspect]

REACTIONS (1)
  - HEADACHE [None]
